FAERS Safety Report 18192580 (Version 1)
Quarter: 2020Q3

REPORT INFORMATION
  Report Type: Spontaneous
  Country: FR (occurrence: FR)
  Receive Date: 20200825
  Receipt Date: 20200825
  Transmission Date: 20201103
  Serious: Yes (Hospitalization)
  Sender: FDA-Public Use
  Company Number: NVSC2020FR230203

PATIENT
  Age: 6 Month
  Sex: Male
  Weight: 7.43 kg

DRUGS (7)
  1. LEVETIRACETAM. [Suspect]
     Active Substance: LEVETIRACETAM
     Indication: EPILEPSY
     Dosage: 300 MG, QD
     Route: 048
     Dates: start: 20200226
  2. VIGABATRINE [Suspect]
     Active Substance: VIGABATRIN
     Indication: EPILEPSY
     Dosage: 1000 MG, QD
     Route: 048
     Dates: start: 20200504
  3. CHOLECALCIFEROL [Suspect]
     Active Substance: CHOLECALCIFEROL
     Indication: VITAMIN SUPPLEMENTATION
     Dosage: 3 DRP, QD
     Route: 048
     Dates: start: 202002
  4. PARACETAMOL [Suspect]
     Active Substance: ACETAMINOPHEN
     Indication: ANALGESIC THERAPY
     Dosage: 1 DF, UNKNOWN
     Route: 048
     Dates: start: 202003
  5. PHOSPHALUGEL [Suspect]
     Active Substance: ALUMINUM PHOSPHATE
     Indication: ABDOMINAL PAIN UPPER
     Dosage: 2 ML, Q4H
     Route: 048
     Dates: start: 20200524, end: 20200720
  6. MELATONINE [Suspect]
     Active Substance: MELATONIN
     Indication: PRODUCT USED FOR UNKNOWN INDICATION
     Dosage: 3 MG, QD
     Route: 048
     Dates: start: 20200508
  7. PHENYTOINE [Suspect]
     Active Substance: PHENYTOIN
     Indication: EPILEPSY
     Dosage: 210 MG, QD
     Route: 048
     Dates: start: 20200504

REACTIONS (1)
  - Pancytopenia [Recovered/Resolved]

NARRATIVE: CASE EVENT DATE: 20200721
